FAERS Safety Report 6040981-6 (Version None)
Quarter: 2009Q1

REPORT INFORMATION
  Report Type: 
  Country: None (occurrence: None)
  Receive Date: 20090116
  Receipt Date: 20080715
  Transmission Date: 20090719
  Serious: Yes (Other)
  Sender: FDA-Public Use
  Company Number: US-BRISTOL-MYERS SQUIBB COMPANY-14266464

PATIENT

DRUGS (2)
  1. ABILIFY [Suspect]
     Indication: MAJOR DEPRESSION
  2. SEROQUEL [Concomitant]

REACTIONS (1)
  - DIABETES MELLITUS [None]
